FAERS Safety Report 6333023-6 (Version None)
Quarter: 2009Q3

REPORT INFORMATION
  Report Type: 
  Country: None (occurrence: None)
  Receive Date: 20090828
  Receipt Date: 20090826
  Transmission Date: 20100115
  Serious: Yes (Death)
  Sender: FDA-Public Use
  Company Number: PHHY2009MX36254

PATIENT
  Sex: Male

DRUGS (1)
  1. TRILEPTAL [Suspect]
     Indication: EPILEPSY
     Dosage: UNK
     Route: 048
     Dates: start: 20071201

REACTIONS (1)
  - DEATH [None]
